FAERS Safety Report 8006174-8 (Version None)
Quarter: 2011Q4

REPORT INFORMATION
  Report Type: 
  Country: None (occurrence: None)
  Receive Date: 20111226
  Receipt Date: 20100902
  Transmission Date: 20120403
  Serious: Yes (Other)
  Sender: FDA-Public Use
  Company Number: AU-BRISTOL-MYERS SQUIBB COMPANY-16277352

PATIENT
  Sex: Female

DRUGS (1)
  1. ORENCIA [Suspect]
     Indication: RHEUMATOID ARTHRITIS
     Dosage: LAST INF 29SEP2010
     Route: 042
     Dates: start: 20100902, end: 20101001

REACTIONS (3)
  - BRONCHIECTASIS [None]
  - KIDNEY INFECTION [None]
  - INFECTION [None]
